FAERS Safety Report 9821836 (Version 1)
Quarter: 2014Q1

REPORT INFORMATION
  Report Type: Spontaneous
  Country: US (occurrence: None)
  Receive Date: 20140114
  Receipt Date: 20140114
  Transmission Date: 20141002
  Serious: Yes (Hospitalization)
  Sender: FDA-Public Use
  Company Number: US-000869

PATIENT
  Age: 67 Year
  Sex: Female

DRUGS (8)
  1. GATTEX [Suspect]
     Indication: SHORT-BOWEL SYNDROME
     Dosage: QD, STREN/VOLUM: 0.25 ML/FREQU: ONCE A DAY
     Route: 058
     Dates: start: 20131119
  2. PHENERGAN [Concomitant]
  3. REMICADE [Concomitant]
  4. IMMUNOSUPPRESSANTS [Concomitant]
  5. MORPHINE [Concomitant]
  6. B12 [Concomitant]
  7. ESTRADIOL [Concomitant]
  8. SOLUTIONS FOR PARENTERAL NUTRITION [Concomitant]

REACTIONS (4)
  - Injection site pain [None]
  - Influenza like illness [None]
  - Gastroenteritis viral [None]
  - Tremor [None]
